FAERS Safety Report 25428758 (Version 1)
Quarter: 2025Q2

REPORT INFORMATION
  Report Type: Spontaneous
  Country: US (occurrence: None)
  Receive Date: 20250612
  Receipt Date: 20250612
  Transmission Date: 20250717
  Serious: Yes (unspecified)
  Sender: FDA-CTU
  Company Number: None

PATIENT
  Age: 20 Year
  Sex: Female
  Weight: 43.09 kg

DRUGS (10)
  1. TZIELD [Suspect]
     Active Substance: TEPLIZUMAB-MZWV
     Indication: Type 1 diabetes mellitus
     Dates: start: 20231030, end: 20231101
  2. Dexcom G7 CGM [Concomitant]
  3. NOVOLOG [Concomitant]
     Active Substance: INSULIN ASPART
  4. LANTUS [Concomitant]
     Active Substance: INSULIN GLARGINE
  5. ZYRTEC [Concomitant]
     Active Substance: CETIRIZINE HYDROCHLORIDE
  6. CALCIUM [Concomitant]
     Active Substance: CALCIUM
  7. FISH OIL [Concomitant]
     Active Substance: FISH OIL
  8. VITAMIN D3 [Concomitant]
     Active Substance: CHOLECALCIFEROL
  9. PROBIOTICS NOS [Concomitant]
     Active Substance: PROBIOTICS NOS
  10. VITAMINS [Concomitant]
     Active Substance: VITAMINS

REACTIONS (8)
  - Liver function test abnormal [None]
  - Therapy cessation [None]
  - Chills [None]
  - Neutropenia [None]
  - Vision blurred [None]
  - Night blindness [None]
  - Visual field defect [None]
  - Cataract subcapsular [None]

NARRATIVE: CASE EVENT DATE: 20240401
